FAERS Safety Report 8782564 (Version 4)
Quarter: 2012Q4

REPORT INFORMATION
  Report Type: 
  Country: US (occurrence: US)
  Receive Date: 20120913
  Receipt Date: 20121130
  Transmission Date: 20130627
  Serious: Yes (Hospitalization, Other)
  Sender: FDA-Public Use
  Company Number: US-009507513-1111USA00651

PATIENT

DRUGS (4)
  1. FOSAMAX [Suspect]
     Indication: OSTEOPOROSIS PROPHYLAXIS
     Dosage: 10 mg, qd
     Route: 048
     Dates: start: 1995, end: 200504
  2. FOSAMAX [Suspect]
     Indication: OSTEOPOROSIS
     Dosage: 70 mg, qw
     Route: 048
     Dates: end: 2005
  3. LIPITOR [Concomitant]
     Indication: HYPERCHOLESTEROLAEMIA
     Dosage: 40 mg, hs
     Route: 048
  4. DIOVAN HCT [Concomitant]
     Indication: HYPERTENSION
     Dosage: 160/25mg qd
     Route: 048

REACTIONS (15)
  - Femur fracture [Unknown]
  - Intramedullary rod insertion [Unknown]
  - Intramedullary rod insertion [Unknown]
  - Hip arthroplasty [Unknown]
  - Hip arthroplasty [Unknown]
  - Hypertension [Recovered/Resolved]
  - Dehydration [Unknown]
  - Azotaemia [Unknown]
  - Hypokalaemia [Unknown]
  - Multiple injuries [Unknown]
  - Anaemia postoperative [Unknown]
  - Femur fracture [Unknown]
  - Fall [Unknown]
  - Vitamin D deficiency [Unknown]
  - Osteopenia [Unknown]
